FAERS Safety Report 9471227 (Version 1)
Quarter: 2013Q3

REPORT INFORMATION
  Report Type: Spontaneous
  Country: US (occurrence: US)
  Receive Date: 20130822
  Receipt Date: 20130822
  Transmission Date: 20140515
  Serious: No
  Sender: FDA-Public Use
  Company Number: US-TARO-2013P1004797

PATIENT
  Age: 62 Year
  Sex: Male

DRUGS (3)
  1. TERBINAFINE HCL CREAM 1% (ATHLETES FOOT) [Suspect]
     Indication: TINEA PEDIS
     Route: 061
     Dates: start: 20130407, end: 20130409
  2. AMLODIPINE BESYLATE [Concomitant]
  3. CRESTOR [Concomitant]

REACTIONS (1)
  - Hypersensitivity [Recovering/Resolving]
